FAERS Safety Report 7285348-8 (Version None)
Quarter: 2011Q1

REPORT INFORMATION
  Report Type: 
  Country: None (occurrence: None)
  Receive Date: 20110210
  Receipt Date: 20110119
  Transmission Date: 20110831
  Serious: No
  Sender: FDA-Public Use
  Company Number: US-B.I. PHARMACEUTICALS,INC./RIDGEFIELD-2011-BP-02015BP

PATIENT
  Age: 67 Year
  Sex: Male

DRUGS (3)
  1. PRADAXA [Suspect]
     Indication: ATRIAL FIBRILLATION
     Dosage: 300 MG
     Route: 048
     Dates: start: 20101101
  2. ALLOPURINOL [Concomitant]
     Indication: GOUT
  3. INSULIN [Concomitant]
     Indication: DIABETES MELLITUS

REACTIONS (1)
  - GOUT [None]
